FAERS Safety Report 16207445 (Version 3)
Quarter: 2019Q2

REPORT INFORMATION
  Report Type: Spontaneous
  Country: US (occurrence: US)
  Receive Date: 20190417
  Receipt Date: 20190430
  Transmission Date: 20190711
  Serious: No
  Sender: FDA-Public Use
  Company Number: US-PFIZER INC-2019120884

PATIENT
  Age: 51 Year
  Sex: Female
  Weight: 68.49 kg

DRUGS (1)
  1. RELPAX [Suspect]
     Active Substance: ELETRIPTAN HYDROBROMIDE
     Indication: MIGRAINE
     Dosage: 80 MG, AS NEEDED (40MG, UP TO TWO TABLETS A DAY AS NEEDED)
     Route: 048

REACTIONS (9)
  - Headache [Unknown]
  - Malaise [Unknown]
  - Hunger [Unknown]
  - Vomiting [Unknown]
  - Neck pain [Unknown]
  - Migraine [Unknown]
  - Ear discomfort [Unknown]
  - Hypoaesthesia [Unknown]
  - Nausea [Unknown]
